FAERS Safety Report 4715462-X (Version None)
Quarter: 2005Q3

REPORT INFORMATION
  Report Type: 
  Country: None (occurrence: None)
  Receive Date: 20050713
  Receipt Date: 20050630
  Transmission Date: 20060218
  Serious: Yes (Life-Threatening, Hospitalization)
  Sender: FDA-Public Use
  Company Number: MEDI-0003532

PATIENT
  Age: 41 Year
  Sex: Male

DRUGS (5)
  1. ETHYOL [Suspect]
     Indication: RADIOTHERAPY
     Dosage: 500 MG, SUBCUTANEOUS
     Route: 058
     Dates: start: 20050512, end: 20050623
  2. RADIATION THERAPY [Concomitant]
  3. INTERFERON (INTERFERON) [Concomitant]
  4. ZOFRAN [Concomitant]
  5. PHENERGAN [Concomitant]

REACTIONS (3)
  - LETHARGY [None]
  - PNEUMONIA [None]
  - SEPSIS [None]
